FAERS Safety Report 4370669-9 (Version None)
Quarter: 2004Q2

REPORT INFORMATION
  Report Type: 
  Country: None (occurrence: None)
  Receive Date: 20040526
  Receipt Date: 20040426
  Transmission Date: 20050107
  Serious: Yes (Hospitalization)
  Sender: FDA-Public Use
  Company Number: 2002-CN-00174CN (0)

PATIENT
  Age: 78 Year
  Sex: Male

DRUGS (9)
  1. TIOTROPIUM BROMIDE (BLIND) (KAI) [Suspect]
     Indication: CHRONIC OBSTRUCTIVE AIRWAYS DISEASE
     Dosage: IH
     Route: 055
     Dates: start: 20020627, end: 20020710
  2. VENTOLIN [Suspect]
     Indication: CHRONIC OBSTRUCTIVE AIRWAYS DISEASE EXACERBATED
     Dosage: (NR, PRN) IH
     Route: 055
     Dates: start: 20020710, end: 20020718
  3. COMBIVENT [Suspect]
     Indication: CHRONIC OBSTRUCTIVE AIRWAYS DISEASE EXACERBATED
     Dosage: 16 PUF
     Route: 055
     Dates: start: 20020710, end: 20020718
  4. VASOTEC (ENALAPRIL MALEATE) (TA) [Concomitant]
  5. CARDIZEM (DILTIAZEM HYDROCHLORIDE) (TA) [Concomitant]
  6. NITRO-DUR (GLYCERYL TRINITRATE) (TTS) [Concomitant]
  7. LOSEC (OMEPRAZOLE) (NR) [Concomitant]
  8. BROMAZEPAM (BROMAZEPAM) (TA) [Concomitant]
  9. AEROMIR (NR) [Concomitant]

REACTIONS (5)
  - ABDOMINAL PAIN [None]
  - ATRIAL FIBRILLATION [None]
  - CHRONIC OBSTRUCTIVE AIRWAYS DISEASE EXACERBATED [None]
  - ENTEROBACTER SEPSIS [None]
  - ESCHERICHIA SEPSIS [None]
